FAERS Safety Report 5901585-6 (Version None)
Quarter: 2008Q3

REPORT INFORMATION
  Report Type: 
  Country: None (occurrence: None)
  Receive Date: 20080929
  Receipt Date: 20080915
  Transmission Date: 20090109
  Serious: Yes (Hospitalization)
  Sender: FDA-Public Use
  Company Number: MX-AMGEN-US275245

PATIENT
  Sex: Female
  Weight: 56 kg

DRUGS (8)
  1. PANITUMUMAB [Suspect]
     Indication: COLORECTAL CANCER
     Route: 042
     Dates: start: 20070705
  2. PANITUMUMAB [Suspect]
     Route: 042
     Dates: start: 20080409, end: 20080409
  3. OMEPRAZOLE [Concomitant]
     Route: 042
     Dates: start: 20080416, end: 20080422
  4. SUCRALFATE [Concomitant]
     Route: 048
     Dates: start: 20080416, end: 20080422
  5. CLEXANE [Concomitant]
     Route: 058
     Dates: start: 20080416, end: 20080422
  6. OXALIPLATIN [Concomitant]
     Route: 042
     Dates: start: 20070705, end: 20080513
  7. LEUCOVORIN CALCIUM [Concomitant]
     Route: 042
     Dates: start: 20070705, end: 20080513
  8. FLUOROURACIL [Concomitant]
     Route: 042
     Dates: start: 20070705, end: 20080513

REACTIONS (2)
  - RASH [None]
  - STOMATITIS [None]
